FAERS Safety Report 6848837-3 (Version None)
Quarter: 2010Q3

REPORT INFORMATION
  Report Type: 
  Country: None (occurrence: None)
  Receive Date: 20100716
  Receipt Date: 20070911
  Transmission Date: 20110219
  Serious: No
  Sender: FDA-Public Use
  Company Number: US-PFIZER INC-2007076554

PATIENT
  Sex: Male
  Weight: 95.454 kg

DRUGS (8)
  1. CHANTIX [Suspect]
     Indication: SMOKING CESSATION THERAPY
     Dates: start: 20070601
  2. MOBIC [Concomitant]
  3. SYNTHROID [Concomitant]
  4. ALLOPURINOL [Concomitant]
  5. PREVACID [Concomitant]
  6. NYSTATIN [Concomitant]
  7. PAXIL [Concomitant]
  8. LIPITOR [Concomitant]

REACTIONS (1)
  - MUSCLE SPASMS [None]
